FAERS Safety Report 9656892 (Version 1)
Quarter: 2013Q4

REPORT INFORMATION
  Report Type: Spontaneous
  Country: JP (occurrence: JP)
  Receive Date: 20131030
  Receipt Date: 20131030
  Transmission Date: 20140711
  Serious: Yes (Hospitalization)
  Sender: FDA-Public Use
  Company Number: JP-B.I. PHARMACEUTICALS,INC./RIDGEFIELD-2013-BI-34219NB

PATIENT
  Age: 83 Year
  Sex: Male
  Weight: 80.5 kg

DRUGS (10)
  1. PRAZAXA [Suspect]
     Indication: ATRIAL FIBRILLATION
     Dosage: 220 MG
     Route: 048
     Dates: start: 201208, end: 20130924
  2. LIPITOR [Concomitant]
     Dosage: 5 MG
     Route: 065
  3. BAYASPIRIN [Concomitant]
     Dosage: 100 MG
     Route: 065
  4. PARIET [Concomitant]
     Dosage: 10 MG
     Route: 065
  5. MAINTATE [Concomitant]
     Dosage: 2.5 MG
     Route: 065
  6. MUCOSAL-L [Concomitant]
     Dosage: 1DF
     Route: 065
  7. CLEANAL [Concomitant]
     Route: 065
  8. DEPAS [Concomitant]
     Dosage: 1 MG
     Route: 065
  9. SEREVENT [Concomitant]
     Route: 065
  10. FLUTIDE:DISKUS [Concomitant]
     Route: 065

REACTIONS (1)
  - Cerebral infarction [Not Recovered/Not Resolved]
